FAERS Safety Report 5690954-8 (Version None)
Quarter: 2008Q2

REPORT INFORMATION
  Report Type: 
  Country: None (occurrence: None)
  Receive Date: 20080401
  Receipt Date: 20080320
  Transmission Date: 20081010
  Serious: Yes (Other)
  Sender: FDA-Public Use
  Company Number: US-SANOFI-SYNTHELABO-A03200801164

PATIENT
  Sex: Male
  Weight: 86.17 kg

DRUGS (6)
  1. PLAVIX [Suspect]
     Indication: VASCULAR GRAFT
     Route: 048
     Dates: start: 19980101
  2. FOLTX [Concomitant]
     Indication: DRUG USE FOR UNKNOWN INDICATION
     Dosage: UNK
     Route: 048
  3. ALTACE [Concomitant]
     Indication: DRUG USE FOR UNKNOWN INDICATION
     Route: 048
  4. METOPROLOL TARTRATE [Concomitant]
     Indication: DRUG USE FOR UNKNOWN INDICATION
     Route: 048
  5. GLIPIZIDE [Concomitant]
     Indication: DRUG USE FOR UNKNOWN INDICATION
     Route: 048
  6. ASPIRIN [Suspect]
     Indication: VASCULAR GRAFT
     Route: 048
     Dates: start: 19980101

REACTIONS (3)
  - BACK PAIN [None]
  - FALL [None]
  - SPINAL FRACTURE [None]
